FAERS Safety Report 8440381-5 (Version None)
Quarter: 2012Q2

REPORT INFORMATION
  Report Type: 
  Country: None (occurrence: None)
  Receive Date: 20120615
  Receipt Date: 20120605
  Transmission Date: 20120825
  Serious: Yes (Hospitalization, Other)
  Sender: FDA-Public Use
  Company Number: US-BAYER-2012-052548

PATIENT
  Age: 36 Year
  Sex: Female
  Weight: 97.052 kg

DRUGS (7)
  1. METOPROLOL SUCCINATE [Concomitant]
     Indication: HYPERTENSION
     Dosage: 12.5 MG, BID
     Route: 048
     Dates: start: 20070101
  2. YAZ [Suspect]
     Indication: OVARIAN CYST
     Dosage: UNK
     Dates: start: 20090414, end: 20090801
  3. CYMBALTA [Concomitant]
     Indication: DEPRESSION
     Dosage: 60 MG, UNK
     Route: 048
     Dates: start: 20070101, end: 20100101
  4. LUNESTA [Concomitant]
     Dosage: 2 MG, HS
     Route: 048
  5. OXYCODONE HCL AND ACETAMINOPHEN [Concomitant]
     Dosage: 10MG/325 MG 1 TABLET EVERY 4 HOURS AS NEEDED
  6. TOPAMAX [Concomitant]
     Indication: ELEVATED MOOD
     Dosage: 50 MG, BID
     Route: 048
     Dates: start: 20080101, end: 20090101
  7. PERCOCET-5 [Concomitant]

REACTIONS (8)
  - MUSCULOSKELETAL PAIN [None]
  - PLEURAL EFFUSION [None]
  - CHEST PAIN [None]
  - PAIN [None]
  - PULMONARY EMBOLISM [None]
  - ADRENAL MASS [None]
  - DYSPNOEA [None]
  - INJURY [None]
